FAERS Safety Report 18495730 (Version 11)
Quarter: 2022Q3

REPORT INFORMATION
  Report Type: Other
  Country: GB (occurrence: GB)
  Receive Date: 20201112
  Receipt Date: 20220909
  Transmission Date: 20221026
  Serious: Yes (Other)
  Sender: FDA-Public Use
  Company Number: None

PATIENT
  Sex: Male

DRUGS (71)
  1. AMLODIPINE [Suspect]
     Active Substance: AMLODIPINE BESYLATE
     Indication: Product used for unknown indication
     Dosage: UNK(OTHER, UNSPECIFIED)
     Route: 065
  2. AMLODIPINE [Suspect]
     Active Substance: AMLODIPINE BESYLATE
     Dosage: UNK
     Route: 065
  3. AMLODIPINE [Suspect]
     Active Substance: AMLODIPINE BESYLATE
     Dosage: UNK (OTHER/UNSPECIFIED)
     Route: 048
  4. AMLODIPINE [Suspect]
     Active Substance: AMLODIPINE BESYLATE
     Dosage: UNK (OTHER/UNSPECIFIED)
     Route: 048
  5. AMLODIPINE [Suspect]
     Active Substance: AMLODIPINE BESYLATE
     Dosage: UNK,(UNKNOWN (OTHER/UNSPECIFIED)
     Route: 048
  6. AMLODIPINE [Suspect]
     Active Substance: AMLODIPINE BESYLATE
     Dosage: UNK,(UNKNOWN (OTHER/UNSPECIFIED)
     Route: 048
  7. AMLODIPINE [Suspect]
     Active Substance: AMLODIPINE BESYLATE
     Dosage: UNK,(UNKNOWN (OTHER/UNSPECIFIED)
     Route: 048
  8. AMLODIPINE [Suspect]
     Active Substance: AMLODIPINE BESYLATE
     Dosage: UNK,(UNKNOWN (OTHER/UNSPECIFIED)
     Route: 048
  9. INDAPAMIDE [Suspect]
     Active Substance: INDAPAMIDE
     Indication: Product used for unknown indication
     Dosage: UNK,FILM COATED TABLET
     Route: 065
  10. INDAPAMIDE [Suspect]
     Active Substance: INDAPAMIDE
     Dosage: UNK
     Route: 065
  11. INDAPAMIDE [Suspect]
     Active Substance: INDAPAMIDE
     Dosage: UNK, FILM COATED TABLET
     Route: 048
  12. INDAPAMIDE [Suspect]
     Active Substance: INDAPAMIDE
     Dosage: UNK, FILM COATED TABLET
     Route: 048
  13. INDAPAMIDE [Suspect]
     Active Substance: INDAPAMIDE
     Dosage: UNK,(TABLET(UNCOATED) (ORAL)
     Route: 048
  14. METFORMIN [Suspect]
     Active Substance: METFORMIN HYDROCHLORIDE
     Indication: Product used for unknown indication
     Dosage: UNK,TABLET
     Route: 065
  15. METFORMIN [Suspect]
     Active Substance: METFORMIN HYDROCHLORIDE
     Dosage: UNK
     Route: 065
  16. METFORMIN [Suspect]
     Active Substance: METFORMIN HYDROCHLORIDE
     Dosage: UNK
     Route: 065
  17. METFORMIN [Suspect]
     Active Substance: METFORMIN HYDROCHLORIDE
     Dosage: UNK, TABLET(UNCOATED)(ORAL)
     Route: 048
  18. METFORMIN [Suspect]
     Active Substance: METFORMIN HYDROCHLORIDE
     Dosage: UNK(TABLET, UNCOATED(ORAL)
     Route: 048
  19. METFORMIN [Suspect]
     Active Substance: METFORMIN HYDROCHLORIDE
     Dosage: UNK(TABLET, UNCOATED(ORAL)
     Route: 048
  20. METFORMIN [Suspect]
     Active Substance: METFORMIN HYDROCHLORIDE
     Dosage: UNK(TABLET, UNCOATED(ORAL)
     Route: 048
  21. METFORMIN [Suspect]
     Active Substance: METFORMIN HYDROCHLORIDE
     Dosage: UNK(TABLET, UNCOATED(ORAL)
     Route: 048
  22. METFORMIN [Suspect]
     Active Substance: METFORMIN HYDROCHLORIDE
     Dosage: UNK(TABLET, UNCOATED(ORAL)
     Route: 048
  23. GLIMEPIRIDE [Suspect]
     Active Substance: GLIMEPIRIDE
     Indication: Product used for unknown indication
     Dosage: UNK(OTHER/UNSPECIFIED)
     Route: 065
  24. GLIMEPIRIDE [Suspect]
     Active Substance: GLIMEPIRIDE
     Dosage: UNK,TABLET
     Route: 065
  25. GLIMEPIRIDE [Suspect]
     Active Substance: GLIMEPIRIDE
     Dosage: UNK,TABLET (UNCOATED)
     Route: 048
  26. GLIMEPIRIDE [Suspect]
     Active Substance: GLIMEPIRIDE
     Dosage: UNK,(OTHER/UNSPECIFIED)
     Route: 048
  27. GLIMEPIRIDE [Suspect]
     Active Substance: GLIMEPIRIDE
     Dosage: UNK(OTHER/UNSPECIFIED)
     Route: 048
  28. GLIMEPIRIDE [Suspect]
     Active Substance: GLIMEPIRIDE
     Dosage: UNK(OTHER/UNSPECIFIED)
     Route: 048
  29. GLIMEPIRIDE [Suspect]
     Active Substance: GLIMEPIRIDE
     Dosage: UNK(OTHER/UNSPECIFIED)
     Route: 048
  30. GLIMEPIRIDE [Suspect]
     Active Substance: GLIMEPIRIDE
     Dosage: UNK(OTHER/UNSPECIFIED)
     Route: 048
  31. RAMIPRIL [Suspect]
     Active Substance: RAMIPRIL
     Indication: Product used for unknown indication
     Dosage: UNK
     Route: 065
  32. RAMIPRIL [Suspect]
     Active Substance: RAMIPRIL
     Dosage: UNK(OTHER/UNSPECIFIED)
     Route: 048
  33. RAMIPRIL [Suspect]
     Active Substance: RAMIPRIL
     Dosage: UNK(OTHER/UNSPECIFIED)
     Route: 048
  34. TAMSULOSIN [Suspect]
     Active Substance: TAMSULOSIN
     Indication: Product used for unknown indication
     Dosage: UNK
     Route: 065
  35. TAMSULOSIN [Suspect]
     Active Substance: TAMSULOSIN
     Dosage: UNK
     Route: 065
  36. TAMSULOSIN [Suspect]
     Active Substance: TAMSULOSIN
     Dosage: UNK
     Route: 065
  37. TAMSULOSIN [Suspect]
     Active Substance: TAMSULOSIN
     Dosage: UNK
     Route: 065
  38. TAMSULOSIN [Suspect]
     Active Substance: TAMSULOSIN
     Dosage: UNK (UNKNOWN (OTHER/UNSPECIFIED)
     Route: 048
  39. TAMSULOSIN [Suspect]
     Active Substance: TAMSULOSIN
     Dosage: UNK (UNKNOWN (OTHER/UNSPECIFIED)
     Route: 048
  40. TAMSULOSIN [Suspect]
     Active Substance: TAMSULOSIN
     Dosage: UNK,(FINASTERIDE)(UNKNOWN (OTHER/UNSPECIFIED)
     Route: 065
  41. ATORVASTATIN CALCIUM [Suspect]
     Active Substance: ATORVASTATIN CALCIUM
     Indication: Product used for unknown indication
     Dosage: UNK
     Route: 065
  42. ATORVASTATIN CALCIUM [Suspect]
     Active Substance: ATORVASTATIN CALCIUM
     Dosage: UNK
     Route: 065
  43. ATORVASTATIN CALCIUM [Suspect]
     Active Substance: ATORVASTATIN CALCIUM
     Dosage: UNK (OTHER UNSPECIFIED)
     Route: 048
  44. ATORVASTATIN CALCIUM [Suspect]
     Active Substance: ATORVASTATIN CALCIUM
     Dosage: UNK(OTHER,UNSPECIFIED)
     Route: 048
  45. ATORVASTATIN CALCIUM [Suspect]
     Active Substance: ATORVASTATIN CALCIUM
     Dosage: UNK(OTHER,UNSPECIFIED)
     Route: 048
  46. QUETIAPINE FUMARATE [Suspect]
     Active Substance: QUETIAPINE FUMARATE
     Indication: Product used for unknown indication
     Dosage: UNK(PROLONGED RELASE)
     Route: 065
  47. QUETIAPINE FUMARATE [Suspect]
     Active Substance: QUETIAPINE FUMARATE
     Dosage: UNK, QUETIAPINE
     Route: 065
  48. QUETIAPINE FUMARATE [Suspect]
     Active Substance: QUETIAPINE FUMARATE
     Dosage: UNK, FILM COATED TABLET
     Route: 065
  49. QUETIAPINE FUMARATE [Suspect]
     Active Substance: QUETIAPINE FUMARATE
     Dosage: UNK, FILM COATED TABLET (QUETIAPINE FUMARATE)
     Route: 048
  50. QUETIAPINE FUMARATE [Suspect]
     Active Substance: QUETIAPINE FUMARATE
     Dosage: UNK (TABLET UNCOATED PROLONGED RELEASE)
     Route: 048
  51. QUETIAPINE FUMARATE [Suspect]
     Active Substance: QUETIAPINE FUMARATE
     Dosage: UNK(OTHER/UNSPECIFIED)
     Route: 048
  52. QUETIAPINE FUMARATE [Suspect]
     Active Substance: QUETIAPINE FUMARATE
     Dosage: UNK,(PROLONGED RELASE TABLET)
     Route: 065
  53. QUETIAPINE FUMARATE [Suspect]
     Active Substance: QUETIAPINE FUMARATE
     Dosage: UNK (TABLET UNCOATED)
     Route: 048
  54. QUETIAPINE FUMARATE [Suspect]
     Active Substance: QUETIAPINE FUMARATE
     Dosage: UNK (TABLET UNCOATED)
     Route: 048
  55. QUETIAPINE FUMARATE [Suspect]
     Active Substance: QUETIAPINE FUMARATE
     Dosage: UNK (TABLET UNCOATED)
     Route: 048
  56. QUETIAPINE FUMARATE [Suspect]
     Active Substance: QUETIAPINE FUMARATE
     Dosage: UNK (TABLET UNCOATED)
     Route: 048
  57. QUETIAPINE FUMARATE [Suspect]
     Active Substance: QUETIAPINE FUMARATE
     Dosage: UNK (TABLET UNCOATED)
     Route: 048
  58. PIOGLITAZONE [Suspect]
     Active Substance: PIOGLITAZONE
     Indication: Product used for unknown indication
     Dosage: UNK
     Route: 065
  59. PIOGLITAZONE [Suspect]
     Active Substance: PIOGLITAZONE
     Dosage: UNK,TABLET
     Route: 065
  60. PIOGLITAZONE [Suspect]
     Active Substance: PIOGLITAZONE
     Dosage: UNK, TABLET(UNCOATED)
     Route: 048
  61. PIOGLITAZONE [Suspect]
     Active Substance: PIOGLITAZONE
     Dosage: UNK(UNKNOWN (OTHER/UNSPECIFIED)
     Route: 048
  62. PIOGLITAZONE [Suspect]
     Active Substance: PIOGLITAZONE
     Dosage: UNK(UNKNOWN (OTHER/UNSPECIFIED)
     Route: 048
  63. PIOGLITAZONE [Suspect]
     Active Substance: PIOGLITAZONE
     Dosage: UNK(UNKNOWN (OTHER/UNSPECIFIED)
     Route: 048
  64. CLOZAPINE [Suspect]
     Active Substance: CLOZAPINE
     Indication: Schizophrenia
     Dosage: UNK, TABLET (UNCOATED)(DURATION OF REGIMEN 3 YEARS)
     Route: 048
     Dates: start: 20181121, end: 20220317
  65. CLOZAPINE [Suspect]
     Active Substance: CLOZAPINE
     Dosage: UNK (START DATE 17 MAR 2022)(DURATION OF REGIMEN3 YEARS 3 MONTHS 23 DAYS)
     Route: 048
  66. AMISULPRIDE [Suspect]
     Active Substance: AMISULPRIDE
     Indication: Product used for unknown indication
     Dosage: UNK (OTHER/UNSPECIFIED)
     Route: 065
  67. AMISULPRIDE [Suspect]
     Active Substance: AMISULPRIDE
     Dosage: UNK(UNKNOWN (OTHER/UNSPECIFIED)
     Route: 048
  68. AMISULPRIDE [Suspect]
     Active Substance: AMISULPRIDE
     Dosage: UNK(UNKNOWN (OTHER/UNSPECIFIED)
     Route: 048
  69. AMISULPRIDE [Suspect]
     Active Substance: AMISULPRIDE
     Dosage: UNK(UNKNOWN (OTHER/UNSPECIFIED)
     Route: 048
  70. AMISULPRIDE [Suspect]
     Active Substance: AMISULPRIDE
     Dosage: UNK(UNKNOWN (OTHER/UNSPECIFIED)
     Route: 048
  71. FINASTERIDE [Suspect]
     Active Substance: FINASTERIDE
     Indication: Product used for unknown indication
     Dosage: UNK
     Route: 065

REACTIONS (7)
  - Hallucination, visual [Unknown]
  - Hyperthyroidism [Unknown]
  - Type 2 diabetes mellitus [Unknown]
  - Neutropenia [Recovered/Resolved]
  - Influenza [Unknown]
  - White blood cell count increased [Recovered/Resolved]
  - White blood cell count decreased [Recovered/Resolved]

NARRATIVE: CASE EVENT DATE: 20150101
